FAERS Safety Report 9127099 (Version 1)
Quarter: 2013Q1

REPORT INFORMATION
  Report Type: Spontaneous
  Country: US (occurrence: US)
  Receive Date: 20130122
  Receipt Date: 20130122
  Transmission Date: 20140127
  Serious: No
  Sender: FDA-Public Use
  Company Number: US-MYLANLABS-2012S1002204

PATIENT
  Age: 64 Year
  Sex: Female

DRUGS (2)
  1. LETROZOLE [Suspect]
     Indication: BREAST CANCER
     Route: 048
     Dates: start: 20110504, end: 20110601
  2. LETROZOLE [Suspect]
     Indication: BREAST CANCER
     Route: 048
     Dates: start: 20120110, end: 20120126

REACTIONS (4)
  - Swollen tongue [Not Recovered/Not Resolved]
  - Hypoaesthesia [Not Recovered/Not Resolved]
  - Oropharyngeal pain [Not Recovered/Not Resolved]
  - Reaction to drug excipients [Not Recovered/Not Resolved]
